FAERS Safety Report 23427956 (Version 3)
Quarter: 2024Q1

REPORT INFORMATION
  Report Type: Spontaneous
  Country: FR (occurrence: FR)
  Receive Date: 20240122
  Receipt Date: 20240216
  Transmission Date: 20240410
  Serious: Yes (Hospitalization)
  Sender: FDA-Public Use
  Company Number: FR-AFSSAPS-AN20220981

PATIENT
  Age: 81 Year
  Sex: Female

DRUGS (16)
  1. LEVOTHYROXINE SODIUM [Suspect]
     Active Substance: LEVOTHYROXINE SODIUM
     Indication: Hypothyroidism
     Dosage: 1 DF, QD
     Route: 048
  2. METFORMIN HYDROCHLORIDE [Suspect]
     Active Substance: METFORMIN HYDROCHLORIDE
     Indication: Type 2 diabetes mellitus
     Dosage: 500 MG, QD
     Route: 048
  3. ZOPICLONE [Suspect]
     Active Substance: ZOPICLONE
     Indication: Pain
     Dosage: 3.75 MG, QD
     Route: 048
  4. SPIRONOLACTONE [Suspect]
     Active Substance: SPIRONOLACTONE
     Indication: Hypertension
     Dosage: 12.5 MG , QD
     Dates: end: 20220213
  5. RILMENIDINE [Suspect]
     Active Substance: RILMENIDINE
     Indication: Hypertension
     Dosage: 2 MG , QD
     Route: 048
  6. METOCLOPRAMIDE HYDROCHLORIDE [Suspect]
     Active Substance: METOCLOPRAMIDE HYDROCHLORIDE
     Indication: Nausea
     Dosage: 30 MG, QD IF NECESSARY,
     Route: 048
  7. REPAGLINIDE [Suspect]
     Active Substance: REPAGLINIDE
     Indication: Type 2 diabetes mellitus
     Dosage: 4 MG, QD
     Route: 048
  8. COVERAM [Suspect]
     Active Substance: AMLODIPINE\PERINDOPRIL
     Indication: Hypertension
     Dosage: 10MG/10MG, 1 DF, QD
     Dates: end: 20220213
  9. IBRANCE [Suspect]
     Active Substance: PALBOCICLIB
     Indication: Breast cancer
     Dosage: 75 MG , QD
     Dates: start: 20210719, end: 20220215
  10. METOPROLOL FUMARATE [Suspect]
     Active Substance: METOPROLOL FUMARATE
     Indication: Hypertension
     Dosage: 100 MG, QD
     Route: 048
  11. SALAZOPYRINE [Suspect]
     Active Substance: SULFASALAZINE
     Indication: Rheumatoid arthritis
     Dosage: 1 G , QD
     Route: 048
  12. TRAMADOL HYDROCHLORIDE [Suspect]
     Active Substance: TRAMADOL HYDROCHLORIDE
     Indication: Pain
     Dosage: 150 MG , QD
     Route: 048
     Dates: end: 20220216
  13. FASLODEX [Suspect]
     Active Substance: FULVESTRANT
     Indication: Breast cancer
     Dosage: 250 MG/5 ML, 1 DF, QM
     Route: 048
  14. AMLODIPINE BESYLATE\PERINDOPRIL ARGININE [Suspect]
     Active Substance: AMLODIPINE BESYLATE\PERINDOPRIL ARGININE
     Indication: Hypertension
     Dosage: 1 DF, QD
     Dates: start: 20220213
  15. PALBOCICLIB [Suspect]
     Active Substance: PALBOCICLIB
     Indication: Breast cancer
     Dosage: 75 MG, QD
     Dates: start: 20210719, end: 20220215
  16. FULVESTRANT [Suspect]
     Active Substance: FULVESTRANT
     Indication: Breast cancer
     Dosage: 250 MG/5 ML,  1 DF, QM
     Route: 048

REACTIONS (1)
  - Ischaemic stroke [Recovered/Resolved with Sequelae]

NARRATIVE: CASE EVENT DATE: 20220216
